FAERS Safety Report 13331863 (Version 1)
Quarter: 2017Q1

REPORT INFORMATION
  Report Type: Spontaneous
  Country: US (occurrence: US)
  Receive Date: 20170313
  Receipt Date: 20170313
  Transmission Date: 20170428
  Serious: Yes (Hospitalization)
  Sender: FDA-Public Use
  Company Number: None

PATIENT
  Age: 46 Year
  Sex: Male

DRUGS (6)
  1. COSENTYX [Suspect]
     Active Substance: SECUKINUMAB
     Indication: RHEUMATOID ARTHRITIS
     Dosage: 300MG Q 4 WEEKS
     Route: 058
     Dates: start: 20161222
  2. FISH OIL [Concomitant]
     Active Substance: FISH OIL
  3. SORIATANE [Concomitant]
     Active Substance: ACITRETIN
  4. LIPITOR [Concomitant]
     Active Substance: ATORVASTATIN CALCIUM
  5. FARXIGA [Concomitant]
     Active Substance: DAPAGLIFLOZIN PROPANEDIOL
  6. VITAMIN C [Concomitant]
     Active Substance: ASCORBIC ACID

REACTIONS (2)
  - Inappropriate schedule of drug administration [None]
  - Condition aggravated [None]

NARRATIVE: CASE EVENT DATE: 20170310
